FAERS Safety Report 10939869 (Version 2)
Quarter: 2015Q2

REPORT INFORMATION
  Report Type: Spontaneous
  Country: US (occurrence: US)
  Receive Date: 20150322
  Receipt Date: 20150526
  Transmission Date: 20150821
  Serious: Yes (Other)
  Sender: FDA-Public Use
  Company Number: US-JNJFOC-20140902980

PATIENT
  Age: 19 Year
  Sex: Female

DRUGS (2)
  1. RISPERIDONE. [Suspect]
     Active Substance: RISPERIDONE
     Indication: ABNORMAL BEHAVIOUR
     Route: 065
  2. RISPERIDONE. [Suspect]
     Active Substance: RISPERIDONE
     Indication: DYSKINESIA
     Route: 065

REACTIONS (7)
  - Tardive dyskinesia [Recovering/Resolving]
  - Grimacing [Unknown]
  - Dystonia [Unknown]
  - Weight decreased [Unknown]
  - Drug ineffective [Recovering/Resolving]
  - Torticollis [Unknown]
  - Dysphagia [Recovering/Resolving]
